FAERS Safety Report 6565226-X (Version None)
Quarter: 2010Q1

REPORT INFORMATION
  Report Type: 
  Country: None (occurrence: None)
  Receive Date: 20100201
  Receipt Date: 20100120
  Transmission Date: 20100710
  Serious: Yes (Other)
  Sender: FDA-Public Use
  Company Number: JP-ROCHE-581966

PATIENT
  Sex: Male

DRUGS (18)
  1. TOCILIZUMAB [Suspect]
     Indication: JUVENILE ARTHRITIS
     Dosage: DOSE DECREASED.
     Route: 041
     Dates: start: 20080625, end: 20080709
  2. TOCILIZUMAB [Suspect]
     Route: 041
     Dates: start: 20080730, end: 20081003
  3. TOCILIZUMAB [Suspect]
     Route: 041
     Dates: start: 20081024, end: 20081119
  4. TOCILIZUMAB [Suspect]
     Route: 041
     Dates: start: 20081216, end: 20090218
  5. TOCILIZUMAB [Suspect]
     Route: 041
     Dates: start: 20090304, end: 20090325
  6. TOCILIZUMAB [Suspect]
     Route: 041
     Dates: start: 20090415, end: 20090819
  7. TOCILIZUMAB [Suspect]
     Route: 041
     Dates: start: 20090917
  8. PREDONINE [Suspect]
     Indication: JUVENILE ARTHRITIS
     Route: 048
  9. METHOTREXATE [Suspect]
     Indication: JUVENILE ARTHRITIS
     Route: 048
  10. PROGRAF [Suspect]
     Indication: JUVENILE ARTHRITIS
     Dosage: FORM: ORAL FORMULATION
     Route: 048
  11. IBRUPROFEN [Suspect]
     Indication: JUVENILE ARTHRITIS
     Dosage: FORM: ORAL FORMULATION (NOT OTHERWISE SPECIFIED)
     Route: 048
  12. BREDININ [Concomitant]
     Route: 048
  13. ALFAROL [Concomitant]
     Dosage: FORM: ORAL FORMULATION (NOT OTHERWISE SPECIFIED).
     Route: 048
  14. COLCHICINE [Concomitant]
     Route: 048
  15. FERO-GRADUMET [Concomitant]
     Route: 048
  16. GASTER D [Concomitant]
     Route: 048
  17. PREDONINE [Concomitant]
     Route: 042
     Dates: start: 20080714
  18. PREDONINE [Concomitant]
     Dosage: DOSE TAPERED.
     Route: 042

REACTIONS (4)
  - CHALAZION [None]
  - FLUSHING [None]
  - GINGIVAL ABSCESS [None]
  - INTESTINAL ULCER [None]
